FAERS Safety Report 18928711 (Version 2)
Quarter: 2021Q1

REPORT INFORMATION
  Report Type: Report from Study
  Country: AU (occurrence: AU)
  Receive Date: 20210223
  Receipt Date: 20210305
  Transmission Date: 20210420
  Serious: Yes (Death, Hospitalization)
  Sender: FDA-Public Use
  Company Number: AU-EISAI MEDICAL RESEARCH-EC-2021-086707

PATIENT
  Age: 48 Year
  Sex: Female
  Weight: 59 kg

DRUGS (10)
  1. PREABLIN [Concomitant]
  2. MS CONTIN [Concomitant]
     Active Substance: MORPHINE SULFATE
  3. ORDINE [Concomitant]
     Active Substance: MORPHINE
  4. METHADONE [Concomitant]
     Active Substance: METHADONE HYDROCHLORIDE
  5. PANTOPRAZOLE [Concomitant]
     Active Substance: PANTOPRAZOLE
  6. ERIBULIN [Suspect]
     Active Substance: ERIBULIN
     Indication: SARCOMA
     Route: 042
     Dates: start: 20201113, end: 20210212
  7. NILSTAT [Concomitant]
     Active Substance: NYSTATIN
  8. THYROXINE [Concomitant]
     Active Substance: LEVOTHYROXINE
  9. CYCLIZINE [Concomitant]
     Active Substance: CYCLIZINE
  10. METOCLOPRAMIDE. [Concomitant]
     Active Substance: METOCLOPRAMIDE

REACTIONS (2)
  - Embolism [Not Recovered/Not Resolved]
  - Pneumonia [Fatal]

NARRATIVE: CASE EVENT DATE: 20210116
